FAERS Safety Report 5633880-2 (Version None)
Quarter: 2008Q1

REPORT INFORMATION
  Report Type: 
  Country: None (occurrence: None)
  Receive Date: 20080221
  Receipt Date: 20080220
  Transmission Date: 20080703
  Serious: Yes (Life-Threatening, Hospitalization)
  Sender: FDA-Public Use
  Company Number: AU-BOEHRINGER INGELHEIM GMBH, GERMANY-2003-BP-04849BP

PATIENT
  Sex: Male
  Weight: 121 kg

DRUGS (14)
  1. MICARDIS [Suspect]
     Indication: CARDIOVASCULAR DISORDER
     Route: 048
     Dates: start: 20020709, end: 20030101
  2. MICARDIS [Suspect]
     Indication: CEREBROVASCULAR ACCIDENT PROPHYLAXIS
  3. RAMIPRIL [Suspect]
     Indication: CARDIOVASCULAR DISORDER
     Route: 048
     Dates: start: 20020709, end: 20030101
  4. RAMIPRIL [Suspect]
     Indication: CEREBROVASCULAR ACCIDENT PROPHYLAXIS
  5. CELECOXIB [Suspect]
     Dates: start: 20020801, end: 20030715
  6. VERAPAMIL [Concomitant]
     Dates: end: 20030715
  7. ASPIRIN [Concomitant]
  8. ASCORBIC ACID [Concomitant]
  9. VITAMIN E [Concomitant]
  10. ATORVASTATIN CALCIUM [Concomitant]
  11. COENZYME Q10 [Concomitant]
  12. ISOSORBIDE MONONITRATE [Concomitant]
  13. ESOMEPRAZOLE MAGNESIUM [Concomitant]
  14. METFORMIN HCL [Concomitant]

REACTIONS (1)
  - RENAL FAILURE ACUTE [None]
